FAERS Safety Report 10280297 (Version 1)
Quarter: 2014Q3

REPORT INFORMATION
  Report Type: Spontaneous
  Country: KR (occurrence: None)
  Receive Date: 20140701
  Receipt Date: 20140701
  Transmission Date: 20150326
  Serious: Yes (Other)
  Sender: FDA-Public Use
  Company Number: SYM-2014-22506

PATIENT
  Age: 53 Year
  Sex: Female

DRUGS (3)
  1. OXALIPLATIN (OXALIPLATIN) [Suspect]
     Active Substance: OXALIPLATIN
     Indication: RECTAL CANCER
  2. FOLINIC ACID [Suspect]
     Active Substance: LEUCOVORIN
     Indication: RECTAL CANCER
  3. FLUOROURACIL (FLUORORACIL) (FLUOROURACIL) [Suspect]
     Active Substance: FLUOROURACIL
     Indication: RECTAL CANCER

REACTIONS (4)
  - Venoocclusive liver disease [None]
  - Liver disorder [None]
  - Peliosis hepatis [None]
  - Hepatic lesion [None]
